FAERS Safety Report 15952235 (Version 2)
Quarter: 2019Q1

REPORT INFORMATION
  Report Type: Spontaneous
  Country: US (occurrence: US)
  Receive Date: 20190212
  Receipt Date: 20190213
  Transmission Date: 20190417
  Serious: No
  Sender: FDA-Public Use
  Company Number: US-PFIZER INC-2019051777

PATIENT
  Age: 88 Year
  Sex: Male

DRUGS (2)
  1. INLYTA [Suspect]
     Active Substance: AXITINIB
     Indication: SALIVARY GLAND CANCER
     Dosage: 6 MG, UNK
  2. INLYTA [Suspect]
     Active Substance: AXITINIB
     Indication: COLON CANCER
     Dosage: 5 MG, UNK

REACTIONS (3)
  - Neoplasm progression [Unknown]
  - General physical health deterioration [Unknown]
  - Product use in unapproved indication [Unknown]
